FAERS Safety Report 11098132 (Version 1)
Quarter: 2015Q2

REPORT INFORMATION
  Report Type: Report from Study
  Country: US (occurrence: US)
  Receive Date: 20150507
  Receipt Date: 20150507
  Transmission Date: 20150821
  Serious: Yes (Hospitalization, Other)
  Sender: FDA-Public Use
  Company Number: US-ASTELLAS-2015US014686

PATIENT
  Age: 46 Year
  Sex: Female

DRUGS (5)
  1. ERLOTINIB [Suspect]
     Active Substance: ERLOTINIB
     Route: 048
     Dates: start: 20090311
  2. ERLOTINIB [Suspect]
     Active Substance: ERLOTINIB
     Indication: TRIPLE NEGATIVE BREAST CANCER
     Route: 048
     Dates: start: 20080624, end: 20081020
  3. CARBOPLATIN. [Suspect]
     Active Substance: CARBOPLATIN
     Indication: TRIPLE NEGATIVE BREAST CANCER
     Route: 042
     Dates: start: 20080624, end: 20081020
  4. DIPHENHYDRAMINE [Concomitant]
     Active Substance: DIPHENHYDRAMINE
     Indication: PRURITUS
     Route: 065
  5. DOCETAXEL. [Suspect]
     Active Substance: DOCETAXEL
     Indication: PRODUCT USED FOR UNKNOWN INDICATION
     Route: 042
     Dates: start: 20080624, end: 20081020

REACTIONS (17)
  - Vomiting [Recovered/Resolved]
  - Abdominal wall haematoma [Recovered/Resolved]
  - Pyrexia [Recovered/Resolved]
  - Thrombosis [Recovered/Resolved]
  - Varicella [Unknown]
  - Ascites [Recovered/Resolved]
  - Small intestinal obstruction [Recovered/Resolved]
  - Subclavian vein thrombosis [Unknown]
  - Cellulitis [Recovered/Resolved]
  - Nausea [Recovered/Resolved]
  - Constipation [Recovered/Resolved]
  - Abdominal pain [Recovered/Resolved]
  - Peripheral swelling [Unknown]
  - Pain in extremity [Unknown]
  - Haemorrhage [Recovered/Resolved]
  - Staphylococcal infection [Recovered/Resolved]
  - Abscess limb [Recovered/Resolved]

NARRATIVE: CASE EVENT DATE: 20080627
